FAERS Safety Report 21193781 (Version 2)
Quarter: 2022Q3

REPORT INFORMATION
  Report Type: Other
  Country: US (occurrence: None)
  Receive Date: 20220810
  Receipt Date: 20220927
  Transmission Date: 20221027
  Serious: Yes (Death)
  Sender: FDA-Public Use
  Company Number: US-ROCHE-3155543

PATIENT

DRUGS (2)
  1. RITUXIMAB [Suspect]
     Active Substance: RITUXIMAB
     Indication: Follicular lymphoma
     Dosage: 375 MG/M2 WEEKLY X 4 IN CYCLE 1 AND ON DAY 1 OF CYCLES 3-6
     Route: 042
  2. ZANDELISIB [Suspect]
     Active Substance: ZANDELISIB
     Indication: Follicular lymphoma
     Dosage: 60 MG  QD FOR TWO 28-DAY CYCLES THEN 60 MG QD DAYS 1-7 (ID) IN CYCLES }/= 3
     Route: 048

REACTIONS (1)
  - COVID-19 [Fatal]
